FAERS Safety Report 10696503 (Version 4)
Quarter: 2015Q2

REPORT INFORMATION
  Report Type: Report from Study
  Country: US (occurrence: US)
  Receive Date: 20150107
  Receipt Date: 20150420
  Transmission Date: 20150821
  Serious: Yes (Death, Hospitalization, Other)
  Sender: FDA-Public Use
  Company Number: US-EXELIXIS-CABO-14005009

PATIENT
  Age: 79 Year
  Sex: Male
  Weight: 91 kg

DRUGS (2)
  1. CABOZANTINIB [Suspect]
     Active Substance: CABOZANTINIB
     Indication: PROSTATE CANCER
     Dosage: 100 MG, QD
     Route: 048
     Dates: start: 20141115, end: 201412
  2. CABOZANTINIB [Suspect]
     Active Substance: CABOZANTINIB
     Dosage: 100 MG, QD
     Route: 048
     Dates: start: 20141231, end: 20150322

REACTIONS (12)
  - Hypocalcaemia [Unknown]
  - Hypopnoea [Unknown]
  - Dry mouth [Unknown]
  - Off label use [Unknown]
  - Death [Fatal]
  - Fatigue [Unknown]
  - Respiratory failure [Unknown]
  - Blood pressure abnormal [Recovering/Resolving]
  - Arthritis bacterial [Unknown]
  - Dizziness [Recovering/Resolving]
  - Dyspnoea [Not Recovered/Not Resolved]
  - Diarrhoea [Unknown]

NARRATIVE: CASE EVENT DATE: 20150322
